FAERS Safety Report 9815156 (Version 2)
Quarter: 2014Q1

REPORT INFORMATION
  Report Type: Spontaneous
  Country: US (occurrence: US)
  Receive Date: 20140114
  Receipt Date: 20140124
  Transmission Date: 20141002
  Serious: No
  Sender: FDA-Public Use
  Company Number: US-BIOGENIDEC-2013BI102920

PATIENT
  Age: 69 Year
  Sex: Female

DRUGS (3)
  1. AVONEX [Suspect]
     Indication: MULTIPLE SCLEROSIS
     Route: 030
     Dates: start: 20001113, end: 20100201
  2. AVONEX [Suspect]
     Indication: MULTIPLE SCLEROSIS
     Route: 030
     Dates: start: 20110919, end: 20120422
  3. AVONEX [Suspect]
     Indication: MULTIPLE SCLEROSIS
     Route: 030
     Dates: start: 20130620, end: 20131121

REACTIONS (10)
  - Abasia [Recovered/Resolved with Sequelae]
  - Dysstasia [Recovered/Resolved]
  - Gait disturbance [Not Recovered/Not Resolved]
  - Hearing impaired [Not Recovered/Not Resolved]
  - Blindness [Recovered/Resolved with Sequelae]
  - Therapy cessation [Not Recovered/Not Resolved]
  - Malaise [Recovered/Resolved]
  - Nausea [Recovered/Resolved]
  - Feeling abnormal [Not Recovered/Not Resolved]
  - Drug ineffective [Unknown]
